FAERS Safety Report 4511763-9 (Version None)
Quarter: 2004Q4

REPORT INFORMATION
  Report Type: 
  Country: None (occurrence: None)
  Receive Date: 20041124
  Receipt Date: 20041111
  Transmission Date: 20050328
  Serious: Yes (Death)
  Sender: FDA-Public Use
  Company Number: US-JNJFOC-20041104401

PATIENT
  Age: 32 Year
  Sex: Female
  Weight: 79.38 kg

DRUGS (2)
  1. RISPERDAL [Suspect]
     Indication: SCHIZOPHRENIA
     Route: 065
     Dates: start: 19930901, end: 19971001
  2. RISPERDAL [Suspect]
     Dosage: ^HIGH DOSAGE^
     Route: 065
     Dates: start: 19930901, end: 19971001

REACTIONS (16)
  - ACUTE LYMPHOCYTIC LEUKAEMIA [None]
  - ALPHA HAEMOLYTIC STREPTOCOCCAL INFECTION [None]
  - BACTERAEMIA [None]
  - BLOOD CULTURE POSITIVE [None]
  - BLOOD PRESSURE DECREASED [None]
  - DIABETES MELLITUS NON-INSULIN-DEPENDENT [None]
  - DIPHTHERIA [None]
  - FEBRILE NEUTROPENIA [None]
  - HYPERPROLACTINAEMIA [None]
  - NAUSEA [None]
  - PNEUMONIA [None]
  - RESPIRATORY FAILURE [None]
  - RESPIRATORY RATE INCREASED [None]
  - SEPSIS [None]
  - STAPHYLOCOCCAL INFECTION [None]
  - TREMOR [None]
